FAERS Safety Report 4544029-1 (Version None)
Quarter: 2005Q1

REPORT INFORMATION
  Report Type: 
  Country: None (occurrence: None)
  Receive Date: 20041223
  Receipt Date: 20041115
  Transmission Date: 20050727
  Serious: No
  Sender: FDA-Public Use
  Company Number: US-JNJFOC-20041103823

PATIENT
  Age: 17 Year
  Sex: Female

DRUGS (1)
  1. ORTHO EVRA [Suspect]
     Indication: CONTRACEPTION
     Dosage: 1 DOSE (S) 3 IN 4 WEEK TRANSDERMAL
     Route: 062
     Dates: end: 20041109

REACTIONS (1)
  - VAGINAL HAEMORRHAGE [None]
